FAERS Safety Report 17265606 (Version 2)
Quarter: 2020Q1

REPORT INFORMATION
  Report Type: Spontaneous
  Country: US (occurrence: US)
  Receive Date: 20200114
  Receipt Date: 20200121
  Transmission Date: 20200409
  Serious: Yes (Other)
  Sender: FDA-Public Use
  Company Number: US-BEH-2020111671

PATIENT
  Age: 31 Year
  Sex: Female
  Weight: 50.8 kg

DRUGS (3)
  1. HAEGARDA [Suspect]
     Active Substance: HUMAN C1-ESTERASE INHIBITOR
     Indication: PROPHYLAXIS
     Dosage: 3000 6000 TWICE WEEKLY
     Route: 058
     Dates: start: 20190108, end: 20190909
  2. HAEGARDA [Suspect]
     Active Substance: HUMAN C1-ESTERASE INHIBITOR
     Indication: HEREDITARY ANGIOEDEMA
     Dosage: 3000 INTERNATIONAL UNIT EVERY MONDAY/THURSDAY
     Route: 058
     Dates: start: 20190108
  3. HAEGARDA [Suspect]
     Active Substance: HUMAN C1-ESTERASE INHIBITOR
     Indication: HEREDITARY ANGIOEDEMA
     Dosage: UNK, BIW
     Route: 058
     Dates: start: 201812

REACTIONS (4)
  - Nausea [Unknown]
  - Decreased appetite [Unknown]
  - Hereditary angioedema [Recovered/Resolved]
  - Infusion site swelling [Not Recovered/Not Resolved]

NARRATIVE: CASE EVENT DATE: 201912
